FAERS Safety Report 6447242-1 (Version None)
Quarter: 2009Q4

REPORT INFORMATION
  Report Type: 
  Country: None (occurrence: None)
  Receive Date: 20091119
  Receipt Date: 20091109
  Transmission Date: 20100525
  Serious: Yes (Death, Hospitalization)
  Sender: FDA-Public Use
  Company Number: TW-PFIZER INC-2006124947

PATIENT
  Age: 64 Year
  Sex: Female

DRUGS (17)
  1. SUNITINIB MALATE [Suspect]
     Indication: GASTROINTESTINAL STROMAL TUMOUR
     Dosage: 50 MG, 1X/DAY
     Dates: start: 20060614, end: 20061004
  2. FARLUTAL [Concomitant]
     Route: 048
     Dates: start: 20061009, end: 20061019
  3. FUROSEMIDE [Concomitant]
     Route: 048
     Dates: start: 20061005, end: 20061019
  4. MULTI-VITAMINS [Concomitant]
     Route: 048
     Dates: start: 20061005
  5. GASCON [Concomitant]
     Route: 048
     Dates: start: 20061009, end: 20061019
  6. METOCLOPRAMIDE [Concomitant]
     Route: 048
     Dates: start: 20061010
  7. DOMPERIDONE [Concomitant]
     Route: 048
     Dates: start: 20061009, end: 20061019
  8. SPIRONOLACTONE [Concomitant]
     Route: 048
     Dates: start: 20061010, end: 20061019
  9. SLOW-K [Concomitant]
     Route: 048
     Dates: start: 20061009, end: 20061011
  10. ACETAMINOPHEN [Concomitant]
     Route: 048
     Dates: start: 20061010, end: 20061010
  11. LASIX [Concomitant]
     Route: 042
     Dates: start: 20061011, end: 20061012
  12. LORAZEPAM [Concomitant]
     Route: 048
     Dates: start: 20061012, end: 20061013
  13. DICLOFENAC [Concomitant]
     Route: 048
     Dates: start: 20061012, end: 20061013
  14. BUPRENORPHINE [Concomitant]
     Route: 048
     Dates: start: 20061013
  15. VITAMIN K TAB [Concomitant]
     Route: 042
     Dates: start: 20061013, end: 20061019
  16. MAGNESIUM OXIDE [Concomitant]
     Route: 048
     Dates: start: 20061014, end: 20061019
  17. SENNOSIDE A [Concomitant]
     Route: 048
     Dates: start: 20061014, end: 20061019

REACTIONS (3)
  - DISEASE PROGRESSION [None]
  - GASTROINTESTINAL STROMAL TUMOUR [None]
  - JAUNDICE [None]
